FAERS Safety Report 16723002 (Version 1)
Quarter: 2019Q3

REPORT INFORMATION
  Report Type: Report from Study
  Country: None (occurrence: US)
  Receive Date: 20190821
  Receipt Date: 20190821
  Transmission Date: 20191005
  Serious: Yes (Hospitalization)
  Sender: FDA-Public Use
  Company Number: US-ABBVIE-19K-163-2796513-00

PATIENT
  Sex: Male
  Weight: 136.2 kg

DRUGS (1)
  1. HUMIRA [Suspect]
     Active Substance: ADALIMUMAB
     Indication: HIDRADENITIS
     Route: 058
     Dates: start: 20190323

REACTIONS (2)
  - Swelling [Unknown]
  - Abscess neck [Unknown]

NARRATIVE: CASE EVENT DATE: 2019
